FAERS Safety Report 5038714-5 (Version None)
Quarter: 2006Q2

REPORT INFORMATION
  Report Type: 
  Country: None (occurrence: None)
  Receive Date: 20060627
  Receipt Date: 20060627
  Transmission Date: 20061013
  Serious: No
  Sender: FDA-Public Use
  Company Number: None

PATIENT
  Age: 54 Year
  Sex: Male
  Weight: 61.6892 kg

DRUGS (1)
  1. LEVAQUIN [Suspect]
     Indication: PROSTATE INFECTION
     Dosage: 500 MG ONE DAILY PO
     Route: 048
     Dates: start: 20040722, end: 20040726

REACTIONS (4)
  - ADVERSE DRUG REACTION [None]
  - BURNING SENSATION [None]
  - HYPOAESTHESIA [None]
  - MALAISE [None]
